FAERS Safety Report 9814667 (Version 2)
Quarter: 2014Q4

REPORT INFORMATION
  Report Type: Spontaneous
  Country: US (occurrence: US)
  Receive Date: 20140113
  Receipt Date: 20141212
  Transmission Date: 20150529
  Serious: Yes (Other)
  Sender: FDA-Public Use
  Company Number: CHPA2014US000645

PATIENT
  Age: 53 Year
  Sex: Male

DRUGS (10)
  1. 4 WAY FAST ACTING [Suspect]
     Active Substance: PHENYLEPHRINE HYDROCHLORIDE
     Indication: SINUS DISORDER
     Dosage: 1 TO 2 DF, PRN
     Route: 045
  2. 4 WAY FAST ACTING [Suspect]
     Active Substance: PHENYLEPHRINE HYDROCHLORIDE
     Indication: NASAL CONGESTION
     Dosage: 1 TO 2 DF, PRN
     Route: 045
  3. 4 WAY MENTHOLATED NASAL SPRAY [Suspect]
     Active Substance: XYLOMETAZOLINE
     Indication: NASAL CONGESTION
     Dosage: 1 TO 2 DF, PRN
     Route: 045
  4. 4 WAY SALINE MOISTURIZING MIST [Suspect]
     Active Substance: SODIUM CHLORIDE
     Indication: SINUS DISORDER
  5. 4 WAY FAST ACTING [Suspect]
     Active Substance: PHENYLEPHRINE HYDROCHLORIDE
     Indication: OFF LABEL USE
     Dosage: UNK, 7 TIMES A DAY
     Route: 045
  6. 4 WAY SALINE MOISTURIZING MIST [Suspect]
     Active Substance: SODIUM CHLORIDE
     Indication: OFF LABEL USE
  7. 4 WAY MENTHOLATED NASAL SPRAY [Suspect]
     Active Substance: XYLOMETAZOLINE
     Indication: SINUS DISORDER
  8. 4 WAY MENTHOLATED NASAL SPRAY [Suspect]
     Active Substance: XYLOMETAZOLINE
     Indication: OFF LABEL USE
  9. MENTHOL. [Concomitant]
     Active Substance: MENTHOL
     Dosage: UNK
     Dates: start: 2014
  10. 4 WAY SALINE MOISTURIZING MIST [Suspect]
     Active Substance: SODIUM CHLORIDE
     Indication: NASAL CONGESTION
     Dosage: 1 TO 2 DF, PRN
     Route: 045

REACTIONS (12)
  - Sinus disorder [Unknown]
  - Expired product administered [Unknown]
  - Underdose [Unknown]
  - Inappropriate schedule of drug administration [Unknown]
  - Joint injury [Not Recovered/Not Resolved]
  - Procedural pain [Unknown]
  - Therapeutic response unexpected [Unknown]
  - Tongue haemorrhage [Recovering/Resolving]
  - Dyspnoea [Unknown]
  - Sneezing [Unknown]
  - Tongue injury [Unknown]
  - Incorrect drug administration duration [Unknown]

NARRATIVE: CASE EVENT DATE: 201312
